FAERS Safety Report 20044703 (Version 1)
Quarter: 2021Q4

REPORT INFORMATION
  Report Type: Spontaneous
  Country: US (occurrence: None)
  Receive Date: 20211108
  Receipt Date: 20211108
  Transmission Date: 20220303
  Serious: Yes (Other)
  Sender: FDA-Public Use
  Company Number: 2021A792507

PATIENT
  Age: 853 Month

DRUGS (1)
  1. TAGRISSO [Suspect]
     Active Substance: OSIMERTINIB
     Route: 048
     Dates: start: 2018

REACTIONS (1)
  - Endometrial cancer [Unknown]

NARRATIVE: CASE EVENT DATE: 20211001
